FAERS Safety Report 4805230-2 (Version None)
Quarter: 2005Q4

REPORT INFORMATION
  Report Type: 
  Country: None (occurrence: None)
  Receive Date: 20051020
  Receipt Date: 20050829
  Transmission Date: 20060501
  Serious: Yes (Hospitalization, Disabling)
  Sender: FDA-Public Use
  Company Number: US-MERCK-0508USA05074

PATIENT
  Age: 51 Year
  Sex: Male
  Weight: 66 kg

DRUGS (5)
  1. SEPTRA [Concomitant]
     Indication: BENIGN PROSTATIC HYPERPLASIA
     Route: 065
     Dates: start: 20010701, end: 20010901
  2. VIOXX [Suspect]
     Indication: BENIGN PROSTATIC HYPERPLASIA
     Route: 048
     Dates: start: 20010601, end: 20030601
  3. VIOXX [Suspect]
     Indication: PROSTATITIS
     Route: 048
     Dates: start: 20010601, end: 20030601
  4. FLOMAX [Concomitant]
     Indication: URINE FLOW DECREASED
     Route: 065
     Dates: start: 20010725
  5. SEPTRA [Concomitant]
     Indication: PROSTATITIS
     Route: 065
     Dates: start: 20010701, end: 20010901

REACTIONS (4)
  - ACUTE MYOCARDIAL INFARCTION [None]
  - BLOOD CHOLESTEROL INCREASED [None]
  - PNEUMONIA [None]
  - PULMONARY HYPERTENSION [None]
